FAERS Safety Report 4436839-6 (Version None)
Quarter: 2004Q3

REPORT INFORMATION
  Report Type: 
  Country: None (occurrence: None)
  Receive Date: 20040823
  Receipt Date: 20040806
  Transmission Date: 20050211
  Serious: Yes (Death, Other)
  Sender: FDA-Public Use
  Company Number: 200410167BBE

PATIENT
  Sex: Male

DRUGS (4)
  1. REFACTO [Suspect]
     Indication: HAEMOPHILIA
     Dosage: INTRAVENOUS
     Route: 042
  2. FACTOR IX COMPLEX [Suspect]
     Indication: HAEMOPHILIA
     Dosage: INTRAVENOUS
     Route: 042
  3. ANTIHEMOPHILIC FACTOR (HUMAN) [Suspect]
     Indication: HAEMOPHILIA
  4. FACTOR IX COMPLEX [Suspect]
     Indication: HAEMOPHILIA
     Dosage: INTRAVENOUS
     Route: 042

REACTIONS (2)
  - ACQUIRED IMMUNODEFICIENCY SYNDROME [None]
  - HIV INFECTION [None]
